FAERS Safety Report 13335890 (Version 2)
Quarter: 2017Q3

REPORT INFORMATION
  Report Type: Report from Study
  Country: US (occurrence: US)
  Receive Date: 20170315
  Receipt Date: 20170710
  Transmission Date: 20171127
  Serious: No
  Sender: FDA-Public Use
  Company Number: US-009507513-1703USA004929

PATIENT
  Sex: Female

DRUGS (1)
  1. NEXPLANON [Suspect]
     Active Substance: ETONOGESTREL
     Indication: PRODUCT USED FOR UNKNOWN INDICATION
     Dosage: UNK

REACTIONS (7)
  - Acne [Unknown]
  - Contusion [Recovered/Resolved]
  - Pain [Unknown]
  - Complication of device removal [Unknown]
  - Pain in extremity [Unknown]
  - Anxiety [Unknown]
  - Movement disorder [Unknown]
